FAERS Safety Report 8418042-8 (Version None)
Quarter: 2012Q2

REPORT INFORMATION
  Report Type: 
  Country: None (occurrence: None)
  Receive Date: 20120531
  Receipt Date: 20120522
  Transmission Date: 20120825
  Serious: Yes (Death)
  Sender: FDA-Public Use
  Company Number: AUR-APL-2011-00170

PATIENT
  Age: 65 Year
  Sex: Male

DRUGS (8)
  1. LAMOTRIGINE [Suspect]
  2. DOXEPIN HCL [Suspect]
     Indication: PRODUCT USED FOR UNKNOWN INDICATION
     Dosage: ORAL
     Route: 048
  3. ACETAMINOPHEN [Suspect]
     Indication: PRODUCT USED FOR UNKNOWN INDICATION
     Dosage: ORAL
     Route: 048
  4. VENLAFAXINE HCL [Suspect]
     Indication: PRODUCT USED FOR UNKNOWN INDICATION
     Dosage: ORAL
     Route: 048
  5. MODAFINIL [Suspect]
     Indication: PRODUCT USED FOR UNKNOWN INDICATION
     Dosage: ORAL
     Route: 048
  6. PROPRANOLOL [Suspect]
     Indication: PRODUCT USED FOR UNKNOWN INDICATION
     Dosage: ORAL
     Route: 048
  7. WARFARIN SODIUM [Suspect]
     Indication: PRODUCT USED FOR UNKNOWN INDICATION
     Dosage: ORAL
     Route: 048
  8. ALPRAZOLAM [Suspect]
     Indication: PRODUCT USED FOR UNKNOWN INDICATION
     Dosage: ORAL
     Route: 048

REACTIONS (5)
  - INTENTIONAL DRUG MISUSE [None]
  - CARDIAC ARREST [None]
  - COMPLETED SUICIDE [None]
  - INTENTIONAL SELF-INJURY [None]
  - RESPIRATORY ARREST [None]
